FAERS Safety Report 6651059-2 (Version None)
Quarter: 2010Q1

REPORT INFORMATION
  Report Type: 
  Country: None (occurrence: None)
  Receive Date: 20100325
  Receipt Date: 20100319
  Transmission Date: 20100710
  Serious: Yes (Hospitalization)
  Sender: FDA-Public Use
  Company Number: AT-SANOFI-AVENTIS-200912144GDDC

PATIENT
  Age: 65 Year
  Sex: Female
  Weight: 76 kg

DRUGS (7)
  1. DOCETAXEL [Suspect]
     Route: 041
     Dates: start: 20080702, end: 20080702
  2. DOCETAXEL [Suspect]
     Route: 041
     Dates: start: 20080903, end: 20080903
  3. MEXALEN [Concomitant]
     Dates: start: 20080711
  4. ESOMEPRAZOLE [Concomitant]
     Dates: start: 20080711
  5. NEULASTA [Concomitant]
     Dates: start: 20080814
  6. IBANDRONIC ACID [Concomitant]
  7. CAL-D-VITA [Concomitant]

REACTIONS (1)
  - ANAL FISTULA [None]
